FAERS Safety Report 9996588 (Version 1)
Quarter: 2014Q1

REPORT INFORMATION
  Report Type: Spontaneous
  Country: DE (occurrence: DE)
  Receive Date: 20140311
  Receipt Date: 20140311
  Transmission Date: 20141002
  Serious: Yes (Death, Other)
  Sender: FDA-Public Use
  Company Number: DE-SA-2014SA026088

PATIENT
  Age: 87 Year
  Sex: Female

DRUGS (4)
  1. CLEXANE [Suspect]
     Indication: ISCHAEMIA
     Route: 058
  2. CLEXANE [Suspect]
     Indication: ISCHAEMIA
     Route: 058
     Dates: start: 20130225
  3. TREVILOR - SLOW RELEASE [Suspect]
     Indication: PRODUCT USED FOR UNKNOWN INDICATION
     Route: 065
  4. ASS [Suspect]
     Indication: PRODUCT USED FOR UNKNOWN INDICATION
     Route: 048

REACTIONS (2)
  - Atrial flutter [Fatal]
  - Cardiomegaly [Unknown]
